FAERS Safety Report 9379225 (Version 1)
Quarter: 2013Q2

REPORT INFORMATION
  Report Type: Spontaneous
  Country: US (occurrence: None)
  Receive Date: 20130626
  Receipt Date: 20130626
  Transmission Date: 20140414
  Serious: Yes (Hospitalization)
  Sender: FDA-Public Use
  Company Number: JPI-P-033095

PATIENT
  Age: 53 Year
  Sex: Female

DRUGS (1)
  1. XYREM (500 MILLIGRAM/MILLILITERS, SOLUTION) (SODIUM OXYBATE) [Suspect]
     Indication: NARCOLEPSY
     Dosage: 2.5 GM (1.25 GM,2 IN 1 D)
     Route: 048
     Dates: start: 20071227

REACTIONS (2)
  - Memory impairment [None]
  - Investigation [None]
